FAERS Safety Report 4843695-0 (Version None)
Quarter: 2005Q4

REPORT INFORMATION
  Report Type: 
  Country: None (occurrence: None)
  Receive Date: 20051202
  Receipt Date: 20051114
  Transmission Date: 20060501
  Serious: Yes (Death, Hospitalization, Other)
  Sender: FDA-Public Use
  Company Number: US-BRISTOL-MYERS SQUIBB COMPANY-13180948

PATIENT
  Age: 66 Year
  Sex: Male
  Weight: 71 kg

DRUGS (13)
  1. CETUXIMAB [Suspect]
     Indication: NON-SMALL CELL LUNG CANCER
     Dosage: INITIATED 01-JUL-2005.
     Route: 042
     Dates: start: 20051107, end: 20051107
  2. CARBOPLATIN [Suspect]
     Indication: NON-SMALL CELL LUNG CANCER
     Dosage: AUC 6.  INITIATED 01-JUL-2005.
     Route: 042
     Dates: start: 20051024, end: 20051024
  3. DOCETAXEL [Suspect]
     Indication: NON-SMALL CELL LUNG CANCER
     Dosage: INITIATED ON 01-JUL-2005.
     Route: 042
     Dates: start: 20051024, end: 20051024
  4. ALBUTEROL [Concomitant]
  5. COMBIVENT [Concomitant]
  6. COUMADIN [Concomitant]
     Indication: ATRIAL FIBRILLATION
     Dosage: BETWEEN 5 AND 7.5 MG ONCE A DAY.
  7. HYDROCHLOROTHIAZIDE [Concomitant]
  8. K-DUR 10 [Concomitant]
  9. MAGNESIUM SULFATE [Concomitant]
  10. NEURONTIN [Concomitant]
     Indication: HERPES ZOSTER
  11. PROCARDIA XL [Concomitant]
  12. TOPROL-XL [Concomitant]
  13. VICODIN [Concomitant]

REACTIONS (11)
  - ASTHENIA [None]
  - ATRIAL FIBRILLATION [None]
  - BLOOD CREATININE INCREASED [None]
  - BRONCHITIS [None]
  - CARDIO-RESPIRATORY ARREST [None]
  - DEHYDRATION [None]
  - ENCEPHALOPATHY [None]
  - MALIGNANT NEOPLASM PROGRESSION [None]
  - MENTAL STATUS CHANGES [None]
  - METASTASES TO CENTRAL NERVOUS SYSTEM [None]
  - MYOCARDIAL INFARCTION [None]
